FAERS Safety Report 7260814-X (Version None)
Quarter: 2011Q1

REPORT INFORMATION
  Report Type: 
  Country: None (occurrence: None)
  Receive Date: 20110130
  Receipt Date: 20101122
  Transmission Date: 20110831
  Serious: No
  Sender: FDA-Public Use
  Company Number: US-ABBOTT-10P-163-0687217-00

PATIENT
  Sex: Female
  Weight: 81.72 kg

DRUGS (1)
  1. HUMIRA [Suspect]
     Indication: PSORIASIS
     Dosage: 40MG-1 EVERY 2 WEEKS, ALSO ON PEN
     Dates: start: 20080101, end: 20100601

REACTIONS (4)
  - ALOPECIA [None]
  - LYMPHADENOPATHY [None]
  - HYPOTHYROIDISM [None]
  - NASOPHARYNGITIS [None]
